FAERS Safety Report 6691721-9 (Version None)
Quarter: 2010Q2

REPORT INFORMATION
  Report Type: 
  Country: None (occurrence: None)
  Receive Date: 20100422
  Receipt Date: 20090330
  Transmission Date: 20101027
  Serious: No
  Sender: FDA-Public Use
  Company Number: US-ASTRAZENECA-2009UW08041

PATIENT
  Age: 32 Year
  Sex: Female

DRUGS (3)
  1. METOPROLOL SUCCINATE [Suspect]
     Indication: HYPERTENSION
     Route: 048
     Dates: start: 19990101
  2. METOPROLOL SUCCINATE [Suspect]
     Indication: TACHYCARDIA
     Route: 048
     Dates: start: 19990101
  3. METOPROLOL SUCCINATE [Suspect]
     Indication: MITRAL VALVE PROLAPSE
     Route: 048
     Dates: start: 19990101

REACTIONS (4)
  - BLOOD PRESSURE INCREASED [None]
  - NERVOUSNESS [None]
  - TACHYCARDIA [None]
  - THIRST [None]
